FAERS Safety Report 8500971 (Version 2)
Quarter: 2014Q1

REPORT INFORMATION
  Report Type: Spontaneous
  Country: US (occurrence: US)
  Receive Date: 20120410
  Receipt Date: 20140124
  Transmission Date: 20141002
  Serious: Yes (Other)
  Sender: FDA-Public Use
  Company Number: US-JNJFOC-20120400787

PATIENT
  Sex: Female
  Weight: 104.33 kg

DRUGS (24)
  1. DURAGESIC [Suspect]
     Indication: SCIATICA
     Route: 062
     Dates: start: 2006, end: 2009
  2. DURAGESIC [Suspect]
     Indication: NEUROPATHY PERIPHERAL
     Route: 062
     Dates: start: 2006, end: 2009
  3. DURAGESIC [Suspect]
     Indication: FIBROMYALGIA
     Route: 062
     Dates: start: 2006, end: 2009
  4. DURAGESIC [Suspect]
     Indication: INTERVERTEBRAL DISC DEGENERATION
     Route: 062
     Dates: start: 2006, end: 2009
  5. DURAGESIC [Suspect]
     Indication: INTERVERTEBRAL DISC DEGENERATION
     Route: 062
     Dates: start: 2006, end: 2009
  6. DURAGESIC [Suspect]
     Indication: SPINAL OSTEOARTHRITIS
     Route: 062
     Dates: start: 2006, end: 2009
  7. DURAGESIC [Suspect]
     Indication: MIGRAINE
     Route: 062
     Dates: start: 2006, end: 2009
  8. DURAGESIC [Suspect]
     Indication: BENIGN INTRACRANIAL HYPERTENSION
     Route: 062
     Dates: start: 2006, end: 2009
  9. DURAGESIC [Suspect]
     Indication: TRIGEMINAL NEURALGIA
     Route: 062
     Dates: start: 2006, end: 2009
  10. DURAGESIC [Suspect]
     Indication: SCIATICA
     Route: 062
     Dates: start: 2009
  11. DURAGESIC [Suspect]
     Indication: NEUROPATHY PERIPHERAL
     Route: 062
     Dates: start: 2009
  12. DURAGESIC [Suspect]
     Indication: FIBROMYALGIA
     Route: 062
     Dates: start: 2009
  13. DURAGESIC [Suspect]
     Indication: INTERVERTEBRAL DISC DEGENERATION
     Route: 062
     Dates: start: 2009
  14. DURAGESIC [Suspect]
     Indication: INTERVERTEBRAL DISC DEGENERATION
     Route: 062
     Dates: start: 2009
  15. DURAGESIC [Suspect]
     Indication: SPINAL OSTEOARTHRITIS
     Route: 062
     Dates: start: 2009
  16. DURAGESIC [Suspect]
     Indication: MIGRAINE
     Route: 062
     Dates: start: 2009
  17. DURAGESIC [Suspect]
     Indication: BENIGN INTRACRANIAL HYPERTENSION
     Route: 062
     Dates: start: 2009
  18. DURAGESIC [Suspect]
     Indication: TRIGEMINAL NEURALGIA
     Route: 062
     Dates: start: 2009
  19. MORPHINE SULFATE [Concomitant]
     Indication: BREAKTHROUGH PAIN
     Dosage: AS NEEDED
     Route: 048
     Dates: start: 2006
  20. SEROQUEL [Concomitant]
     Indication: DEPRESSION
     Route: 048
     Dates: start: 200705
  21. PROMETHAZINE [Concomitant]
     Indication: HEADACHE
     Dosage: AS NEEDED
     Route: 048
     Dates: start: 1991
  22. PROMETHAZINE [Concomitant]
     Indication: PAIN
     Dosage: AS NEEDED
     Route: 048
     Dates: start: 1991
  23. PROZAC [Concomitant]
     Indication: DEPRESSION
     Dosage: START DATE: 2007 OR 2008
     Route: 048
     Dates: start: 2008
  24. XANAX [Concomitant]
     Indication: PANIC ATTACK
     Route: 048
     Dates: start: 1990

REACTIONS (10)
  - Dyskinesia [Unknown]
  - Tooth abscess [Unknown]
  - Wrong technique in drug usage process [Unknown]
  - Drug withdrawal syndrome [Unknown]
  - Application site discolouration [Unknown]
  - Product adhesion issue [Unknown]
  - Product quality issue [Unknown]
  - Product quality issue [Unknown]
  - Product quality issue [Unknown]
  - Drug dose omission [Unknown]
